FAERS Safety Report 15410678 (Version 1)
Quarter: 2018Q3

REPORT INFORMATION
  Report Type: Spontaneous
  Country: US (occurrence: US)
  Receive Date: 20180914
  Receipt Date: 20180914
  Transmission Date: 20181010
  Serious: No
  Sender: FDA-Public Use
  Company Number: None

PATIENT
  Age: 42 Year
  Sex: Female

DRUGS (5)
  1. IBRANCE [Suspect]
     Active Substance: PALBOCICLIB
     Indication: BREAST CANCER
     Route: 048
     Dates: start: 20180827
  2. CALCIUM D [Concomitant]
     Active Substance: CALCIUM\VITAMIN D
  3. LETROZOLE. [Concomitant]
     Active Substance: LETROZOLE
  4. MORPHIN [Concomitant]
     Active Substance: MORPHINE
  5. NIVTAZAPINE [Concomitant]

REACTIONS (1)
  - Fatigue [None]

NARRATIVE: CASE EVENT DATE: 20180830
